FAERS Safety Report 16970547 (Version 4)
Quarter: 2020Q2

REPORT INFORMATION
  Report Type: Spontaneous
  Country: US (occurrence: US)
  Receive Date: 20191029
  Receipt Date: 20200520
  Transmission Date: 20200713
  Serious: No
  Sender: FDA-Public Use
  Company Number: US-PFIZER INC-2019176067

PATIENT
  Age: 66 Year
  Sex: Female

DRUGS (1)
  1. LYRICA [Suspect]
     Active Substance: PREGABALIN
     Indication: NEUROPATHY PERIPHERAL
     Dosage: 450 MG, DAILY [LYRICA 150 MG CAPSULE, TAKE 3 CAPSULE(S) EVERY DAY BY ORAL ROUTE AS DIRECTED]
     Route: 048

REACTIONS (2)
  - Weight increased [Unknown]
  - Abdominal distension [Unknown]
